FAERS Safety Report 7983672-4 (Version None)
Quarter: 2011Q4

REPORT INFORMATION
  Report Type: 
  Country: None (occurrence: None)
  Receive Date: 20111215
  Receipt Date: 20111207
  Transmission Date: 20120403
  Serious: Yes (Other)
  Sender: FDA-Public Use
  Company Number: KR-B.I. PHARMACEUTICALS,INC./RIDGEFIELD-2011-BP-28094YA

PATIENT
  Age: 81 Year
  Sex: Male
  Weight: 57 kg

DRUGS (6)
  1. PIOGLITAZONE [Concomitant]
  2. SODIUM POLYSTYRENE SULFONATE (SODIUM POLYSTYRENE SULFONATE) [Concomitant]
     Dates: start: 20110708, end: 20110710
  3. TAMSULOSIN HCL [Suspect]
     Indication: NEUROGENIC BLADDER
     Route: 048
     Dates: start: 20110602
  4. FERROUS SULFATE TAB [Concomitant]
     Dates: start: 20100407
  5. NATEGLINIDE [Concomitant]
     Dates: start: 20100407
  6. RAMIPRIL [Concomitant]
     Dates: start: 20100407

REACTIONS (1)
  - DIABETES MELLITUS INADEQUATE CONTROL [None]
